FAERS Safety Report 13578861 (Version 2)
Quarter: 2017Q3

REPORT INFORMATION
  Report Type: Report from Study
  Country: JP (occurrence: JP)
  Receive Date: 20170524
  Receipt Date: 20170802
  Transmission Date: 20171127
  Serious: Yes (Death, Hospitalization, Other)
  Sender: FDA-Public Use
  Company Number: JP-AMGEN-JPNCT2017078849

PATIENT
  Age: 44 Year
  Sex: Male
  Weight: 57 kg

DRUGS (35)
  1. WATER FOR INJECTION [Concomitant]
     Active Substance: WATER
     Dosage: UNK
     Route: 065
  2. HICALIQ [Concomitant]
     Active Substance: CALCIUM GLUCONATE\DEXTROSE\MAGNESIUM SULFATE\POTASSIUM ACETATE\POTASSIUM PHOSPHATE, DIBASIC\ZINC SULFATE
     Indication: PROPHYLAXIS
     Dosage: UNK
     Route: 041
  3. PREDONINE [Concomitant]
     Active Substance: PREDNISOLONE
     Indication: GRAFT VERSUS HOST DISEASE
     Dosage: UNK
     Route: 065
  4. PROSTARMON F [Concomitant]
     Active Substance: DINOPROST
     Dosage: UNK
     Route: 065
  5. CONTOMIN [Concomitant]
     Active Substance: CHLORPROMAZINE
     Indication: DELIRIUM
     Dosage: UNK
     Route: 030
  6. TEICOPLANIN [Concomitant]
     Active Substance: TEICOPLANIN
     Indication: BACTERAEMIA
     Dosage: UNK
     Route: 041
  7. BACTRAMIN [Concomitant]
     Active Substance: SULFAMETHOXAZOLE\TRIMETHOPRIM
     Indication: BACTERAEMIA
     Dosage: UNK
     Route: 041
  8. ROHYPNOL [Concomitant]
     Active Substance: FLUNITRAZEPAM
     Indication: DELIRIUM
     Dosage: UNK
     Route: 042
  9. SODIUM CHLORIDE. [Concomitant]
     Active Substance: SODIUM CHLORIDE
     Indication: PROPHYLAXIS
     Dosage: UNK
     Route: 065
  10. PANTOL [Concomitant]
     Active Substance: DEXPANTHENOL
     Indication: GRAFT VERSUS HOST DISEASE
     Dosage: UNK
     Route: 065
  11. BISOLVON [Concomitant]
     Active Substance: BROMHEXINE HYDROCHLORIDE
     Indication: ATELECTASIS
     Dosage: UNK
     Route: 065
  12. NEOAMIYU [Concomitant]
     Active Substance: AMINO ACIDS
     Indication: PROPHYLAXIS
     Dosage: UNK
     Route: 041
  13. KCL CORRECTIVE [Concomitant]
     Indication: PROPHYLAXIS
     Dosage: UNK
     Route: 065
  14. AMBISOME [Concomitant]
     Active Substance: AMPHOTERICIN B
     Indication: FUNGAEMIA
     Dosage: UNK
     Route: 041
  15. FUNGUARD [Concomitant]
     Active Substance: MICAFUNGIN SODIUM
     Indication: FUNGAEMIA
     Dosage: UNK
     Route: 041
  16. HUMULIN R [Concomitant]
     Active Substance: INSULIN HUMAN
     Indication: GRAFT VERSUS HOST DISEASE
     Dosage: UNK
     Route: 065
  17. PRIMPERAN [Concomitant]
     Active Substance: METOCLOPRAMIDE HYDROCHLORIDE
     Indication: GRAFT VERSUS HOST DISEASE
     Dosage: UNK
     Route: 065
  18. FENTANYL. [Concomitant]
     Active Substance: FENTANYL
     Indication: MUCOUS MEMBRANE DISORDER
     Dosage: UNK
     Route: 065
  19. ISOTONIC SODIUM CHLORIDE SOLUTION [Concomitant]
     Active Substance: SODIUM CHLORIDE
     Dosage: UNK
     Route: 065
  20. POLARAMINE [Concomitant]
     Active Substance: DEXCHLORPHENIRAMINE MALEATE
     Indication: PROPHYLAXIS
     Dosage: UNK
     Route: 065
  21. MINERAMIC [Concomitant]
     Indication: PROPHYLAXIS
     Dosage: UNK
     Route: 041
  22. SOL-MELCORT [Concomitant]
     Active Substance: METHYLPREDNISOLONE SODIUM SUCCINATE
     Indication: FUNGAEMIA
     Dosage: UNK
     Route: 065
  23. ZOSYN [Concomitant]
     Active Substance: PIPERACILLIN SODIUM\TAZOBACTAM SODIUM
     Indication: BACTERAEMIA
     Dosage: UNK
     Route: 042
  24. OMEPRAZOLE. [Concomitant]
     Active Substance: OMEPRAZOLE
     Indication: MUCOUS MEMBRANE DISORDER
     Dosage: UNK
     Route: 042
  25. LASIX [Concomitant]
     Active Substance: FUROSEMIDE
     Indication: RENAL IMPAIRMENT
     Dosage: UNK
     Route: 042
  26. ADONA [Concomitant]
     Active Substance: CARBAZOCHROME SODIUM SULFONATE
     Indication: MUCOUS MEMBRANE DISORDER
     Dosage: UNK
     Route: 065
  27. TRANSAMIN [Concomitant]
     Active Substance: TRANEXAMIC ACID
     Indication: MUCOUS MEMBRANE DISORDER
     Dosage: UNK
     Route: 065
  28. NEOLAMIN MULTI V [Concomitant]
     Active Substance: HYDROXOCOBALAMIN\PYRIDOXINE HYDROCHLORIDE\THIAMINE HYDROCHLORIDE
     Indication: PROPHYLAXIS
     Dosage: UNK
     Route: 041
  29. ROMIPLOSTIM [Suspect]
     Active Substance: ROMIPLOSTIM
     Indication: IMMUNE THROMBOCYTOPENIC PURPURA
     Dosage: 60 MUG, QWK
     Route: 058
     Dates: start: 20150330, end: 20150406
  30. MAGNESIUM SULFATE. [Concomitant]
     Active Substance: MAGNESIUM SULFATE
     Indication: PROPHYLAXIS
     Dosage: UNK
     Route: 065
  31. GLUCOSE [Concomitant]
     Active Substance: DEXTROSE
     Indication: PROPHYLAXIS
     Dosage: UNK
     Route: 065
  32. HEPAFLUSH [Concomitant]
     Active Substance: HEPARIN SODIUM
     Indication: PROPHYLAXIS
     Dosage: UNK
     Route: 042
  33. VICCLOX [Concomitant]
     Active Substance: ACYCLOVIR SODIUM
     Indication: PROPHYLAXIS
     Dosage: UNK
     Route: 041
  34. PROGRAF [Concomitant]
     Active Substance: TACROLIMUS\TACROLIMUS ANHYDROUS
     Indication: GRAFT VERSUS HOST DISEASE
     Dosage: UNK
     Route: 065
  35. SOLDEM 1 [Concomitant]
     Active Substance: DEXTROSE\SODIUM CHLORIDE\SODIUM LACTATE
     Dosage: UNK
     Route: 041

REACTIONS (3)
  - Pneumonia [Fatal]
  - Off label use [Unknown]
  - Renal impairment [Fatal]

NARRATIVE: CASE EVENT DATE: 20150401
